FAERS Safety Report 6219952-2 (Version None)
Quarter: 2009Q2

REPORT INFORMATION
  Report Type: 
  Country: None (occurrence: None)
  Receive Date: 20090609
  Receipt Date: 20090226
  Transmission Date: 20091009
  Serious: No
  Sender: FDA-Public Use
  Company Number: US-BAYER-200915947NA

PATIENT
  Sex: Female
  Weight: 73 kg

DRUGS (2)
  1. ULTRAVIST 300 [Suspect]
     Indication: COMPUTERISED TOMOGRAM ABDOMEN
     Dosage: TOTAL DAILY DOSE: 100 ML  UNIT DOSE: 100 ML
     Route: 042
     Dates: start: 20090226, end: 20090226
  2. READI-CAT [Concomitant]
     Indication: COMPUTERISED TOMOGRAM
     Dosage: 2 BOTTLES
     Route: 048
     Dates: start: 20090226

REACTIONS (3)
  - NASAL CONGESTION [None]
  - RASH MACULAR [None]
  - SNEEZING [None]
